FAERS Safety Report 12781078 (Version 1)
Quarter: 2016Q3

REPORT INFORMATION
  Report Type: Spontaneous
  Country: DK (occurrence: DK)
  Receive Date: 20160926
  Receipt Date: 20160926
  Transmission Date: 20161109
  Serious: Yes (Hospitalization, Other)
  Sender: FDA-Public Use
  Company Number: DK-ELI_LILLY_AND_COMPANY-DK201601006923

PATIENT
  Age: 38 Year
  Sex: Male

DRUGS (1)
  1. ZYPADHERA [Suspect]
     Active Substance: OLANZAPINE PAMOATE
     Indication: PRODUCT USED FOR UNKNOWN INDICATION
     Dosage: 300 MG, BID
     Route: 030
     Dates: start: 2012

REACTIONS (12)
  - Restlessness [Recovered/Resolved]
  - Confusional state [Unknown]
  - Diabetes mellitus inadequate control [Unknown]
  - Alcohol abuse [Not Recovered/Not Resolved]
  - Infection [Unknown]
  - Somnolence [Recovered/Resolved]
  - Alcohol interaction [Recovered/Resolved]
  - Logorrhoea [Recovered/Resolved]
  - Agitation [Recovered/Resolved]
  - Sluggishness [Unknown]
  - Gait disturbance [Unknown]
  - Speech disorder [Unknown]

NARRATIVE: CASE EVENT DATE: 20160106
